FAERS Safety Report 19507644 (Version 2)
Quarter: 2021Q3

REPORT INFORMATION
  Report Type: Spontaneous
  Country: CA (occurrence: CA)
  Receive Date: 20210708
  Receipt Date: 20210908
  Transmission Date: 20211014
  Serious: Yes (Hospitalization)
  Sender: FDA-Public Use
  Company Number: CA-TEVA-2021-CA-1928853

PATIENT
  Age: 32 Year
  Sex: Female

DRUGS (2)
  1. CAPECITABINE. [Suspect]
     Active Substance: CAPECITABINE
     Indication: RECTAL CANCER
     Dosage: 2000 MG/M2 DAILY; ON DAYS 1?14 OF A 3 WEEKS CYCLE; AS PER THE CAPOX REGIMEN; CYCLICALS
     Route: 048
  2. OXALIPLATIN. [Suspect]
     Active Substance: OXALIPLATIN
     Indication: RECTAL CANCER
     Dosage: ON DAY OF A 3 WEEKS CYCLE; AS PER THE CAPOX REGIMEN
     Route: 065

REACTIONS (6)
  - Cardiogenic shock [Recovered/Resolved]
  - Blood lactic acid increased [Recovered/Resolved]
  - Cardiomyopathy [Recovered/Resolved]
  - Cardiac failure acute [Recovered/Resolved]
  - Cardiotoxicity [Recovered/Resolved]
  - Pulmonary oedema [Recovered/Resolved]
